FAERS Safety Report 8291834-4 (Version None)
Quarter: 2012Q2

REPORT INFORMATION
  Report Type: 
  Country: None (occurrence: None)
  Receive Date: 20120417
  Receipt Date: 20120409
  Transmission Date: 20120825
  Serious: Yes (Other)
  Sender: FDA-Public Use
  Company Number: US-ELI_LILLY_AND_COMPANY-US201012000239

PATIENT
  Sex: Male

DRUGS (10)
  1. FORTEO [Suspect]
     Indication: OSTEOPOROSIS
     Dosage: 20 UG, QD
     Route: 058
     Dates: start: 20101112
  2. FORTEO [Suspect]
     Dosage: 20 UG, QD
     Route: 058
  3. CASODEX [Concomitant]
     Indication: PROSTATE CANCER
  4. FORTEO [Suspect]
     Dosage: 20 UG, QD
     Route: 058
  5. FORTEO [Suspect]
     Dosage: 20 UG, QD
     Route: 058
  6. PROSCAR [Concomitant]
     Indication: PROSTATE CANCER
  7. CARDIOVASCULAR SYSTEM DRUGS [Concomitant]
  8. FORTEO [Suspect]
     Dosage: 20 UG, QD
     Route: 058
  9. FORTEO [Suspect]
     Dosage: 20 UG, QD
     Route: 058
  10. FORTEO [Suspect]
     Dosage: 20 UG, QD
     Route: 058

REACTIONS (16)
  - ANDROGENS ABNORMAL [None]
  - MALAISE [None]
  - GASTROINTESTINAL INFECTION [None]
  - VITAMIN D DECREASED [None]
  - BONE PAIN [None]
  - PAIN IN EXTREMITY [None]
  - OESOPHAGEAL PAIN [None]
  - CAROTID ARTERY OCCLUSION [None]
  - CONSTIPATION [None]
  - OBSTRUCTION [None]
  - GASTROINTESTINAL DISORDER [None]
  - ARTHRALGIA [None]
  - TRANSIENT ISCHAEMIC ATTACK [None]
  - OROPHARYNGEAL PAIN [None]
  - RESPIRATORY TRACT INFECTION [None]
  - PAIN [None]
